FAERS Safety Report 13961119 (Version 5)
Quarter: 2019Q1

REPORT INFORMATION
  Report Type: Spontaneous
  Country: JP (occurrence: JP)
  Receive Date: 20170912
  Receipt Date: 20190114
  Transmission Date: 20190417
  Serious: Yes (Death, Hospitalization, Other)
  Sender: FDA-Public Use
  Company Number: JP-BRISTOL-MYERS SQUIBB COMPANY-BMS-2017-080601

PATIENT
  Age: 62 Year
  Sex: Male

DRUGS (1)
  1. OPDIVO [Suspect]
     Active Substance: NIVOLUMAB
     Indication: HEAD AND NECK CANCER
     Dosage: 3 MG/KG, UNK
     Route: 041
     Dates: start: 20170721, end: 20170828

REACTIONS (8)
  - Lymphocyte morphology abnormal [Not Recovered/Not Resolved]
  - Diarrhoea [Unknown]
  - Pneumonia [Unknown]
  - Death [Fatal]
  - Cytomegalovirus infection [Unknown]
  - Generalised erythema [Unknown]
  - Drug-induced liver injury [Recovering/Resolving]
  - Pyrexia [Unknown]

NARRATIVE: CASE EVENT DATE: 20170904
